FAERS Safety Report 7158740-X (Version None)
Quarter: 2010Q4

REPORT INFORMATION
  Report Type: 
  Country: None (occurrence: None)
  Receive Date: 20101214
  Receipt Date: 20101206
  Transmission Date: 20110411
  Serious: Yes (Other)
  Sender: FDA-Public Use
  Company Number: US-ABBOTT-10P-163-0689705-00

PATIENT
  Sex: Male
  Weight: 83.99 kg

DRUGS (5)
  1. HUMIRA [Suspect]
     Indication: GUTTATE PSORIASIS
     Route: 048
     Dates: start: 20080101, end: 20090101
  2. HUMIRA [Suspect]
     Route: 058
     Dates: start: 20090101
  3. HUMIRA [Suspect]
     Route: 058
     Dates: start: 20100401, end: 20100401
  4. CLOBETASOL [Concomitant]
     Indication: PSORIASIS
     Route: 061
  5. UNKNOWN PSORIASIS TOPICAL [Concomitant]
     Indication: PSORIASIS
     Route: 061

REACTIONS (5)
  - BIPOLAR DISORDER [None]
  - DENTAL CARIES [None]
  - HIV INFECTION [None]
  - PSORIASIS [None]
  - SINUSITIS [None]
